FAERS Safety Report 10994896 (Version 1)
Quarter: 2015Q2

REPORT INFORMATION
  Report Type: Spontaneous
  Country: AU (occurrence: AU)
  Receive Date: 20150407
  Receipt Date: 20150407
  Transmission Date: 20150821
  Serious: Yes (Death, Hospitalization)
  Sender: FDA-Public Use
  Company Number: PHHY2015AU039466

PATIENT
  Age: 2 Year
  Sex: Male

DRUGS (1)
  1. RITALIN [Suspect]
     Active Substance: METHYLPHENIDATE HYDROCHLORIDE
     Indication: PRODUCT USED FOR UNKNOWN INDICATION
     Dosage: UNK
     Route: 065

REACTIONS (10)
  - Vomiting [Unknown]
  - Contusion [Unknown]
  - Unresponsive to stimuli [Unknown]
  - Lethargy [Unknown]
  - Death [Fatal]
  - Accidental exposure to product by child [Unknown]
  - Brain injury [Unknown]
  - Chest discomfort [Unknown]
  - Muscle rigidity [Unknown]
  - Fall [Recovered/Resolved]

NARRATIVE: CASE EVENT DATE: 2012
